FAERS Safety Report 5725628-8 (Version None)
Quarter: 2008Q2

REPORT INFORMATION
  Report Type: 
  Country: None (occurrence: None)
  Receive Date: 20080501
  Receipt Date: 20080407
  Transmission Date: 20081010
  Serious: No
  Sender: FDA-Public Use
  Company Number: US-BOEHRINGER INGELHEIM GMBH, GERMANY-2008-BP-05380BP

PATIENT
  Age: 68 Year
  Sex: Male

DRUGS (5)
  1. SPIRIVA [Suspect]
     Route: 055
     Dates: start: 20071001, end: 20080401
  2. ATENOLOL [Concomitant]
     Indication: ROUTINE HEALTH MAINTENANCE
  3. LEVOTHYROXINE SODIUM [Concomitant]
     Indication: ROUTINE HEALTH MAINTENANCE
  4. LIPITOR [Concomitant]
     Indication: ROUTINE HEALTH MAINTENANCE
  5. PREVACID [Concomitant]
     Indication: ROUTINE HEALTH MAINTENANCE

REACTIONS (2)
  - FLUSHING [None]
  - HOT FLUSH [None]
